FAERS Safety Report 6791113-8 (Version None)
Quarter: 2010Q2

REPORT INFORMATION
  Report Type: 
  Country: None (occurrence: None)
  Receive Date: 20100624
  Receipt Date: 20100618
  Transmission Date: 20101027
  Serious: Yes (Other)
  Sender: FDA-Public Use
  Company Number: PHHY2010MX40374

PATIENT
  Age: 17 Year
  Sex: Male

DRUGS (3)
  1. ZELMAC [Suspect]
     Indication: ABDOMINAL PAIN UPPER
     Dosage: 2 TABLETS PER DAY
     Route: 048
     Dates: start: 20100401
  2. VIBRACINA [Concomitant]
     Dosage: UNK
  3. BUSCAPINA [Concomitant]
     Dosage: UNK

REACTIONS (1)
  - GALLBLADDER NON-FUNCTIONING [None]
